FAERS Safety Report 7341836-7 (Version None)
Quarter: 2011Q1

REPORT INFORMATION
  Report Type: 
  Country: None (occurrence: None)
  Receive Date: 20110309
  Receipt Date: 20110224
  Transmission Date: 20110831
  Serious: No
  Sender: FDA-Public Use
  Company Number: FR-ELI_LILLY_AND_COMPANY-FR201103000172

PATIENT
  Age: 53 Year
  Sex: Female

DRUGS (6)
  1. CYMBALTA [Suspect]
     Dosage: 30 MG, UNK
  2. CYMBALTA [Suspect]
     Dosage: 60 MG, UNK
  3. CYMBALTA [Suspect]
     Dosage: 90 MG, UNK
  4. XANAX [Concomitant]
  5. CYMBALTA [Suspect]
     Dosage: 60 MG, UNK
  6. CYMBALTA [Suspect]
     Dosage: 30 MG, UNK
     Route: 048

REACTIONS (1)
  - TRANSAMINASES INCREASED [None]
